FAERS Safety Report 7537656-0 (Version None)
Quarter: 2011Q2

REPORT INFORMATION
  Report Type: 
  Country: None (occurrence: None)
  Receive Date: 20110609
  Receipt Date: 20110526
  Transmission Date: 20111010
  Serious: Yes (Other)
  Sender: FDA-Public Use
  Company Number: JP-CEPHALON-2011002903

PATIENT
  Age: 63 Year
  Sex: Female

DRUGS (10)
  1. BENDAMUSTINE HCL [Suspect]
     Route: 042
     Dates: start: 20110511, end: 20110512
  2. PALONOSETRON HYDROCHLORIDE [Concomitant]
  3. ACYCLOVIR [Concomitant]
     Dates: start: 20110309, end: 20110406
  4. REBAMIPIDE [Concomitant]
     Dates: start: 20110309, end: 20110406
  5. LENOGRASTIM [Concomitant]
     Dates: start: 20110428, end: 20110428
  6. RITUXIMAB [Concomitant]
     Dates: start: 20110306
  7. SULFAMETHOXAZOLE AND TRIMETHOPRIM [Concomitant]
     Dates: start: 20110309, end: 20110406
  8. BENDAMUSTINE HCL [Suspect]
     Indication: B-CELL LYMPHOMA
     Route: 042
     Dates: start: 20110309, end: 20110310
  9. BENDAMUSTINE HCL [Suspect]
     Route: 042
     Dates: start: 20110406, end: 20110407
  10. DEXAMETHASONE SODIUM PHOSPHATE [Concomitant]
     Dates: start: 20110306

REACTIONS (2)
  - ANGIOPATHY [None]
  - VASCULITIS [None]
